FAERS Safety Report 6193847-5 (Version None)
Quarter: 2009Q2

REPORT INFORMATION
  Report Type: 
  Country: None (occurrence: None)
  Receive Date: 20090518
  Receipt Date: 20090506
  Transmission Date: 20091009
  Serious: Yes (Other)
  Sender: FDA-Public Use
  Company Number: DE-PFIZER INC-2009208421

PATIENT
  Age: 65 Year

DRUGS (5)
  1. LYRICA [Suspect]
     Indication: POLYNEUROPATHY
     Dosage: 50 MG, 2X/DAY
     Route: 048
     Dates: start: 20080101
  2. LYRICA [Suspect]
     Dosage: 75 MG, 2X/DAY
     Route: 048
  3. ANASTROZOLE [Concomitant]
     Indication: BREAST CANCER
  4. CORTISONE [Concomitant]
     Indication: SJOGREN'S SYNDROME
  5. NALOXONE HYDROCHLORIDE/TILIDINE HYDROCHLORIDE [Concomitant]

REACTIONS (10)
  - BREAST PAIN [None]
  - DIZZINESS [None]
  - DRY MOUTH [None]
  - DYSURIA [None]
  - INCREASED APPETITE [None]
  - NASAL DRYNESS [None]
  - RETINAL HAEMORRHAGE [None]
  - URINE FLOW DECREASED [None]
  - VISUAL IMPAIRMENT [None]
  - WEIGHT INCREASED [None]
